FAERS Safety Report 5214198-9 (Version None)
Quarter: 2007Q1

REPORT INFORMATION
  Report Type: 
  Country: None (occurrence: None)
  Receive Date: 20070122
  Receipt Date: 20070112
  Transmission Date: 20070707
  Serious: Yes (Other)
  Sender: FDA-Public Use
  Company Number: JP-ROCHE-472981

PATIENT
  Age: 65 Year
  Sex: Male
  Weight: 70 kg

DRUGS (4)
  1. PEGASYS [Suspect]
     Route: 058
     Dates: start: 20060623, end: 20060623
  2. PEGASYS [Suspect]
     Route: 058
     Dates: start: 20060629, end: 20061124
  3. PEGASYS [Suspect]
     Route: 058
     Dates: start: 20061130, end: 20061207
  4. PEGASYS [Suspect]
     Route: 058
     Dates: start: 20061214

REACTIONS (3)
  - ATRIAL FIBRILLATION [None]
  - PLATELET COUNT DECREASED [None]
  - RASH [None]
